FAERS Safety Report 12480277 (Version 3)
Quarter: 2018Q2

REPORT INFORMATION
  Report Type: Spontaneous
  Country: AU (occurrence: AU)
  Receive Date: 20160620
  Receipt Date: 20180420
  Transmission Date: 20180711
  Serious: Yes (Other)
  Sender: FDA-Public Use
  Company Number: AU-ASTRAZENECA-2016SE65016

PATIENT
  Sex: Male
  Weight: 70 kg

DRUGS (3)
  1. METFORMIN [Concomitant]
     Active Substance: METFORMIN HYDROCHLORIDE
  2. DIAMICRON [Concomitant]
     Active Substance: GLICLAZIDE
  3. FORXIGA [Suspect]
     Active Substance: DAPAGLIFLOZIN
     Indication: TYPE 2 DIABETES MELLITUS
     Route: 048
     Dates: start: 201603, end: 201604

REACTIONS (4)
  - Blood glucose increased [Unknown]
  - Urine output increased [Unknown]
  - Ketoacidosis [Unknown]
  - Polydipsia [Unknown]
